FAERS Safety Report 5236818-5 (Version None)
Quarter: 2007Q1

REPORT INFORMATION
  Report Type: 
  Country: None (occurrence: None)
  Receive Date: 20061208
  Receipt Date: 20050519
  Transmission Date: 20070707
  Serious: Yes (Other)
  Sender: FDA-Public Use
  Company Number: 2005UW07779

PATIENT
  Age: 68 Year
  Sex: Female
  Weight: 69.4003 kg

DRUGS (8)
  1. CRESTOR [Suspect]
     Indication: BLOOD CHOLESTEROL INCREASED
     Dosage: 10 MG QD PO
     Route: 048
     Dates: start: 20040101
  2. DIOVAN [Concomitant]
  3. PREVACID [Concomitant]
  4. SINGULAIR [Concomitant]
  5. TRICOR [Concomitant]
  6. TOPROL-XL [Concomitant]
  7. CLONIDINE [Concomitant]
  8. MUSCLE RELAXANT [Concomitant]

REACTIONS (4)
  - ASTHENIA [None]
  - GAIT DISTURBANCE [None]
  - MYALGIA [None]
  - OEDEMA PERIPHERAL [None]
